FAERS Safety Report 6859996-0 (Version None)
Quarter: 2010Q3

REPORT INFORMATION
  Report Type: 
  Country: None (occurrence: None)
  Receive Date: 20100720
  Receipt Date: 20100708
  Transmission Date: 20110219
  Serious: Yes (Other)
  Sender: FDA-Public Use
  Company Number: JP-PFIZER INC-2010085492

PATIENT
  Age: 48 Year
  Sex: Male

DRUGS (1)
  1. CHAMPIX [Suspect]
     Indication: EX-TOBACCO USER
     Dosage: 1 MG, 1X/DAY
     Route: 048
     Dates: start: 20100602, end: 20100629

REACTIONS (1)
  - HYPERTENSION [None]
